FAERS Safety Report 19580149 (Version 3)
Quarter: 2021Q3

REPORT INFORMATION
  Report Type: Report from Study
  Country: US (occurrence: US)
  Receive Date: 20210720
  Receipt Date: 20210825
  Transmission Date: 20211014
  Serious: Yes (Hospitalization)
  Sender: FDA-Public Use
  Company Number: US-INSMED, INC.-US-INS-21-00259

PATIENT
  Age: 33 Year
  Sex: Female

DRUGS (3)
  1. ARIKAYCE [Suspect]
     Active Substance: AMIKACIN
     Indication: PNEUMONIA PSEUDOMONAL
     Dosage: 590 MILLIGRAM, QD
     Route: 055
     Dates: start: 2021, end: 2021
  2. ARIKAYCE [Suspect]
     Active Substance: AMIKACIN
     Indication: BRONCHIECTASIS
     Dosage: 590 MILLIGRAM, QD
     Route: 055
     Dates: start: 2020, end: 202101
  3. ARIKAYCE [Suspect]
     Active Substance: AMIKACIN
     Indication: PNEUMONIA
     Dosage: 590 MILLIGRAM, QD
     Route: 055
     Dates: start: 20210717, end: 202108

REACTIONS (7)
  - Therapy interrupted [Unknown]
  - Off label use [Unknown]
  - Pneumonia [Recovered/Resolved]
  - Product dose omission issue [Unknown]
  - Hospitalisation [Unknown]
  - Haemoptysis [Unknown]
  - Productive cough [Unknown]

NARRATIVE: CASE EVENT DATE: 202101
